FAERS Safety Report 26051429 (Version 1)
Quarter: 2025Q4

REPORT INFORMATION
  Report Type: Spontaneous
  Country: SA (occurrence: SA)
  Receive Date: 20251117
  Receipt Date: 20251117
  Transmission Date: 20260118
  Serious: Yes (Hospitalization, Other)
  Sender: EXELA PHARMA SCIENCES
  Company Number: SA-EXELAPHARMA-2025EXLA00214

PATIENT
  Age: 18 Year
  Sex: Male
  Weight: 35 kg

DRUGS (12)
  1. GANCICLOVIR [Suspect]
     Active Substance: GANCICLOVIR
     Indication: Antiviral prophylaxis
  2. GANCICLOVIR [Suspect]
     Active Substance: GANCICLOVIR
     Dosage: INDUCTION DOSE
     Route: 042
  3. HUMAN CYTOMEGALOVIRUS IMMUNE GLOBULIN [Concomitant]
     Active Substance: HUMAN CYTOMEGALOVIRUS IMMUNE GLOBULIN
  4. METHYLPREDNISOLONE [Concomitant]
     Active Substance: METHYLPREDNISOLONE
  5. METHYLPREDNISOLONE [Concomitant]
     Active Substance: METHYLPREDNISOLONE
     Indication: Transplant rejection
  6. ANTI-THYMOCYTE GLOBULIN (RABBIT) NOS [Suspect]
     Active Substance: LAPINE T-LYMPHOCYTE IMMUNE GLOBULIN
     Indication: Immunosuppressant drug therapy
  7. TACROLIMUS [Concomitant]
     Active Substance: TACROLIMUS
  8. INFLIXIMAB [Concomitant]
     Active Substance: INFLIXIMAB
  9. VEDOLIZUMAB [Concomitant]
     Active Substance: VEDOLIZUMAB
     Dosage: SINGLE DOSE
  10. SIROLIMUS [Concomitant]
     Active Substance: SIROLIMUS
  11. FOSCARNET [Concomitant]
     Active Substance: FOSCARNET
  12. Plasma exchange with fresh frozen plasma [Concomitant]
     Indication: Thrombotic microangiopathy

REACTIONS (3)
  - Drug ineffective [Unknown]
  - Condition aggravated [Unknown]
  - Acute kidney injury [Recovered/Resolved]
